FAERS Safety Report 7967841-5 (Version None)
Quarter: 2011Q4

REPORT INFORMATION
  Report Type: 
  Country: None (occurrence: None)
  Receive Date: 20111207
  Receipt Date: 20110627
  Transmission Date: 20120403
  Serious: Yes (Other)
  Sender: FDA-Public Use
  Company Number: 54973 AE # 503

PATIENT
  Age: 73 Year
  Sex: Female

DRUGS (7)
  1. INSULIN [Concomitant]
  2. QUININE SULFATE [Suspect]
     Indication: PAIN IN EXTREMITY
     Dosage: 2 TABS QD X 10 YEARS
  3. QUININE SULFATE [Suspect]
     Indication: MUSCLE SPASMS
     Dosage: 2 TABS QD X 10 YEARS
  4. QUININE SULFATE [Suspect]
     Indication: MUSCLE SPASMS
  5. QUININE SULFATE [Suspect]
     Indication: PAIN IN EXTREMITY
  6. ZINC [Concomitant]
  7. COZAAR [Concomitant]

REACTIONS (2)
  - TUBERCULOSIS BLADDER [None]
  - BLADDER CANCER [None]
